FAERS Safety Report 5643474-0 (Version None)
Quarter: 2008Q1

REPORT INFORMATION
  Report Type: 
  Country: None (occurrence: None)
  Receive Date: 20080228
  Receipt Date: 20080213
  Transmission Date: 20080703
  Serious: Yes (Hospitalization)
  Sender: FDA-Public Use
  Company Number: DE-BAYER-200810269GPV

PATIENT
  Age: 58 Year
  Sex: Male
  Weight: 79 kg

DRUGS (9)
  1. ALEMTUZUMAB [Suspect]
     Indication: CHRONIC LYMPHOCYTIC LEUKAEMIA RECURRENT
     Route: 058
     Dates: start: 20070912
  2. FLUDARABINE [Suspect]
     Indication: CHRONIC LYMPHOCYTIC LEUKAEMIA RECURRENT
     Route: 042
     Dates: start: 20070912
  3. CYCLOPHOSPHAMIDE [Suspect]
     Indication: CHRONIC LYMPHOCYTIC LEUKAEMIA RECURRENT
     Route: 042
     Dates: start: 20070912
  4. COTRIMOXAZOL FORTE [Suspect]
     Route: 048
     Dates: start: 20070912
  5. VALTREX [Suspect]
     Dosage: TOTAL DAILY DOSE: 1000 MG
     Route: 048
     Dates: start: 20070912
  6. ACETAMINOPHEN [Concomitant]
     Route: 048
     Dates: start: 20070912
  7. TAVEGIL [Concomitant]
     Route: 042
     Dates: start: 20070912
  8. ACETAMINOPHEN [Concomitant]
     Route: 048
     Dates: start: 20070912
  9. PREDNISOLUT [Concomitant]
     Route: 042
     Dates: start: 20070912

REACTIONS (1)
  - DRUG ERUPTION [None]
